FAERS Safety Report 8616170-5 (Version None)
Quarter: 2012Q3

REPORT INFORMATION
  Report Type: 
  Country: None (occurrence: None)
  Receive Date: 20120823
  Receipt Date: 20120822
  Transmission Date: 20120928
  Serious: Yes (Life-Threatening, Hospitalization)
  Sender: FDA-Public Use
  Company Number: IT-BAYER-2012-086961

PATIENT
  Age: 55 Year
  Sex: Female

DRUGS (1)
  1. ULTRAVIST 150 [Suspect]
     Dosage: 120 ML, ONCE
     Route: 042
     Dates: start: 20120821, end: 20120821

REACTIONS (4)
  - HYPOVOLAEMIC SHOCK [None]
  - ERYTHEMA [None]
  - OEDEMA MOUTH [None]
  - CHEILITIS [None]
